FAERS Safety Report 5907037-1 (Version None)
Quarter: 2008Q4

REPORT INFORMATION
  Report Type: 
  Country: None (occurrence: None)
  Receive Date: 20081003
  Receipt Date: 20081001
  Transmission Date: 20090506
  Serious: Yes (Hospitalization)
  Sender: FDA-Public Use
  Company Number: BE-BRISTOL-MYERS SQUIBB COMPANY-14294102

PATIENT
  Age: 69 Year
  Sex: Female
  Weight: 70 kg

DRUGS (8)
  1. ABILIFY [Suspect]
     Indication: CONFUSIONAL STATE
     Route: 048
     Dates: start: 20080723, end: 20080727
  2. PROLOPA [Concomitant]
     Route: 048
  3. PROTHIADEN [Concomitant]
     Route: 048
  4. CAMCOLIT [Concomitant]
     Route: 048
  5. ZOCOR [Concomitant]
  6. GLUCOPHAGE [Concomitant]
     Dosage: 1 DOSAGE FORM = 500(UNIT NOT SPECIFIED)
  7. ZOMETA [Concomitant]
     Dosage: 1 DOSAGE FORM = 2.5(UNIT NOT SPECIFIED)
  8. LORMETAZEPAM [Concomitant]

REACTIONS (3)
  - DIABETES INSIPIDUS [None]
  - FLUID INTAKE REDUCED [None]
  - SEDATION [None]
